FAERS Safety Report 18450500 (Version 6)
Quarter: 2021Q4

REPORT INFORMATION
  Report Type: Spontaneous
  Country: US (occurrence: US)
  Receive Date: 20201030
  Receipt Date: 20211129
  Transmission Date: 20220304
  Serious: Yes (Other)
  Sender: FDA-Public Use
  Company Number: US-TEVA-2020-US-1843433

PATIENT
  Age: 71 Year
  Sex: Male

DRUGS (17)
  1. VALSARTAN [Suspect]
     Active Substance: VALSARTAN
     Indication: Hypertension
     Dosage: DOSAGE: 40MILLIGRAM
     Route: 065
     Dates: start: 20160626, end: 20160922
  2. VALSARTAN [Suspect]
     Active Substance: VALSARTAN
     Dosage: DOSAGE: 40MILLIGRAM
     Route: 065
     Dates: start: 20160923, end: 20161221
  3. VALSARTAN [Suspect]
     Active Substance: VALSARTAN
     Dosage: DOSAGE: 40MILLIGRAM
     Route: 065
     Dates: start: 20160616, end: 20170704
  4. VALSARTAN [Suspect]
     Active Substance: VALSARTAN
     Dosage: DOSAGE: 40MILLIGRAM
     Route: 065
     Dates: start: 20150511, end: 20150809
  5. VALSARTAN [Suspect]
     Active Substance: VALSARTAN
     Dosage: DOSAGE: 40MILLIGRAM
     Route: 065
     Dates: start: 20150824, end: 20151122
  6. VALSARTAN [Suspect]
     Active Substance: VALSARTAN
     Dosage: DOSAGE: 40MILLIGRAM
     Route: 065
     Dates: start: 20160519, end: 20160706
  7. VALSARTAN [Suspect]
     Active Substance: VALSARTAN
     Indication: Hypertension
     Dosage: DOSAGE: 40 MILLIGRAM
     Route: 065
     Dates: start: 20150511, end: 20151107
  8. VALSARTAN [Suspect]
     Active Substance: VALSARTAN
     Dosage: DOSAGE: 40 MILLIGRAM
     Route: 065
     Dates: start: 20151123, end: 20160221
  9. VALSARTAN [Suspect]
     Active Substance: VALSARTAN
     Indication: Hypertension
     Dosage: DOSAGE: 40 MILLIGRAM
     Route: 065
     Dates: start: 20150724, end: 20150813
  10. VALSARTAN [Suspect]
     Active Substance: VALSARTAN
     Indication: Hypertension
     Dosage: DOSAGE: 40 MILLIGRAM
     Route: 065
     Dates: start: 20160212, end: 20160512
  11. VALSARTAN [Suspect]
     Active Substance: VALSARTAN
     Indication: Hypertension
     Dosage: DOSAGE: 40 MILLIGRAM
     Route: 048
     Dates: start: 20190410, end: 20191007
  12. VALSARTAN [Suspect]
     Active Substance: VALSARTAN
     Route: 048
  13. DIOVAN [Suspect]
     Active Substance: VALSARTAN
     Indication: Hypertension
     Route: 048
     Dates: start: 20121219, end: 20121222
  14. PERCOCET 10MG [Concomitant]
     Route: 048
  15. METFORMIN [Concomitant]
     Active Substance: METFORMIN HYDROCHLORIDE
     Indication: Type 2 diabetes mellitus
  16. INSULIN NOS [Concomitant]
     Active Substance: INSULIN NOS
     Indication: Type 2 diabetes mellitus
  17. ROSUVASTATIN [Concomitant]
     Active Substance: ROSUVASTATIN
     Indication: Hyperlipidaemia
     Dosage: AT BEDTIME
     Route: 048

REACTIONS (3)
  - Small intestine carcinoma [Unknown]
  - Hepatic cancer metastatic [Not Recovered/Not Resolved]
  - Metastases to lymph nodes [Not Recovered/Not Resolved]
